FAERS Safety Report 6172244-2 (Version None)
Quarter: 2009Q2

REPORT INFORMATION
  Report Type: 
  Country: None (occurrence: None)
  Receive Date: 20090429
  Receipt Date: 20090420
  Transmission Date: 20091009
  Serious: Yes (Other)
  Sender: FDA-Public Use
  Company Number: US-ABBOTT-09P-163-0568970-00

PATIENT
  Sex: Female
  Weight: 74.91 kg

DRUGS (14)
  1. HUMIRA [Suspect]
     Indication: CROHN'S DISEASE
     Route: 058
     Dates: start: 20080801, end: 20090213
  2. NADOLOL [Concomitant]
     Indication: HEADACHE
  3. BUTALBITAL ACETAMINOPHEN AND CAFFEINE [Concomitant]
     Indication: HEADACHE
  4. SANCTURA XR [Concomitant]
     Indication: URINARY INCONTINENCE
     Route: 048
  5. ALENDRONATE SODIUM [Concomitant]
     Indication: OSTEOPOROSIS
     Route: 048
  6. ZANTAC [Concomitant]
     Indication: GASTROOESOPHAGEAL REFLUX DISEASE
  7. CALCIUM [Concomitant]
     Indication: OSTEOPOROSIS
     Route: 048
  8. GLUCOSAMINE + CHONDROITIN [Concomitant]
     Indication: ARTHRITIS
     Dosage: 500/400 MG TWICE DAILY
  9. MULTI-VITAMIN [Concomitant]
     Indication: MEDICAL DIET
     Route: 048
  10. DUCOSATE SODIUM [Concomitant]
     Indication: CONSTIPATION PROPHYLAXIS
     Route: 048
  11. MIRALAX [Concomitant]
     Indication: CONSTIPATION
     Dosage: AS DIRECTED
     Route: 048
  12. CITRACEL [Concomitant]
     Indication: CONSTIPATION
     Dosage: AS DIRECTED
  13. ENTOCORT EC [Concomitant]
     Indication: CROHN'S DISEASE
     Route: 048
     Dates: start: 20090228
  14. OMNIPRED [Concomitant]
     Indication: CATARACT OPERATION
     Dosage: UNKNOWN
     Route: 047

REACTIONS (5)
  - CATARACT [None]
  - DIARRHOEA [None]
  - MACULOPATHY [None]
  - PRURITUS [None]
  - RASH GENERALISED [None]
